FAERS Safety Report 5566397-4 (Version None)
Quarter: 2007Q4

REPORT INFORMATION
  Report Type: 
  Country: None (occurrence: None)
  Receive Date: 20071130
  Receipt Date: 20070831
  Transmission Date: 20080405
  Serious: No
  Sender: FDA-Public Use
  Company Number: US200709000214

PATIENT

DRUGS (2)
  1. BYETTA [Suspect]
  2. EXENATIDE UNK STRENGTH PEN, DISPOSABLE DEVICE (EXENATIDE PEN (UNKNOWN [Concomitant]

REACTIONS (4)
  - INJECTION SITE HYPERSENSITIVITY [None]
  - LIP SWELLING [None]
  - ORAL PRURITUS [None]
  - PRURITUS [None]
